FAERS Safety Report 9404651 (Version 1)
Quarter: 2013Q3

REPORT INFORMATION
  Report Type: Spontaneous
  Country: US (occurrence: None)
  Receive Date: 20130716
  Receipt Date: 20130716
  Transmission Date: 20140515
  Serious: Yes (Hospitalization)
  Sender: FDA-Public Use
  Company Number: None

PATIENT
  Age: 69 Year
  Sex: Male

DRUGS (2)
  1. GABAPENTIN [Suspect]
     Indication: CONVULSION
     Route: 048
     Dates: start: 20130519, end: 20130601
  2. CARBAMAZEPINE [Suspect]
     Indication: CONVULSION
     Route: 048
     Dates: start: 20130531, end: 20130602

REACTIONS (2)
  - Somnolence [None]
  - Somnolence [None]
